FAERS Safety Report 9263887 (Version 1)
Quarter: 2013Q2

REPORT INFORMATION
  Report Type: Spontaneous
  Country: US (occurrence: None)
  Receive Date: 20130429
  Receipt Date: 20130429
  Transmission Date: 20140414
  Serious: Yes (Other)
  Sender: FDA-Public Use
  Company Number: None

PATIENT
  Age: 15 Year
  Sex: Male
  Weight: 49.9 kg

DRUGS (2)
  1. LEVETIRACETAM [Suspect]
     Indication: CONVULSION
  2. KEPPRA [Concomitant]

REACTIONS (2)
  - Convulsion [None]
  - Product substitution issue [None]
